FAERS Safety Report 23752347 (Version 1)
Quarter: 2024Q2

REPORT INFORMATION
  Report Type: Spontaneous
  Country: CA (occurrence: CA)
  Receive Date: 20240417
  Receipt Date: 20240417
  Transmission Date: 20240716
  Serious: Yes (Other)
  Sender: FDA-Public Use
  Company Number: CA-TEVA-VS-3181947

PATIENT
  Age: 68 Year
  Sex: Female
  Weight: 61 kg

DRUGS (5)
  1. METHYLPREDNISOLONE [Suspect]
     Active Substance: METHYLPREDNISOLONE
     Indication: Product used for unknown indication
     Dosage: DOSAGE FORM: NOT SPECIFIIED
     Route: 065
  2. RITONAVIR [Interacting]
     Active Substance: RITONAVIR
     Indication: Antiretroviral therapy
     Dosage: DOSAGE FORM: NOT SPECIFIED
     Route: 065
  3. ABACAVIR [Concomitant]
     Active Substance: ABACAVIR
     Indication: Product used for unknown indication
     Route: 065
  4. DARUNAVIR [Concomitant]
     Active Substance: DARUNAVIR
     Indication: Product used for unknown indication
     Route: 048
  5. LAMIVUDINE [Concomitant]
     Active Substance: LAMIVUDINE
     Indication: Product used for unknown indication
     Dosage: DOSAGE FORM: NOT SPECIFIED
     Route: 065

REACTIONS (3)
  - Addison^s disease [Unknown]
  - Drug interaction [Unknown]
  - Orthostatic hypotension [Unknown]
